FAERS Safety Report 10539522 (Version 2)
Quarter: 2014Q4

REPORT INFORMATION
  Report Type: Spontaneous
  Country: US (occurrence: US)
  Receive Date: 20141023
  Receipt Date: 20141023
  Transmission Date: 20150529
  Serious: No
  Sender: FDA-Public Use
  Company Number: US-ALLERGAN-1413523US

PATIENT
  Age: 67 Year
  Sex: Male

DRUGS (3)
  1. PRED FORTE [Concomitant]
     Active Substance: PREDNISOLONE ACETATE
     Indication: EYE OPERATION
     Dosage: TWICE TO FOUR TIMES DAILY
     Dates: start: 201405
  2. LUMIGAN [Suspect]
     Active Substance: BIMATOPROST
     Indication: GLAUCOMA
     Dosage: 1 GTT, BID
     Route: 047
     Dates: start: 201404
  3. COMBIGAN[R] [Suspect]
     Active Substance: BRIMONIDINE TARTRATE\TIMOLOL MALEATE
     Indication: GLAUCOMA
     Dosage: 1 GTT, BID
     Route: 047
     Dates: start: 201404

REACTIONS (3)
  - Blood pressure increased [Recovering/Resolving]
  - Scleral discolouration [Not Recovered/Not Resolved]
  - Scleral hyperaemia [Not Recovered/Not Resolved]

NARRATIVE: CASE EVENT DATE: 20140609
